FAERS Safety Report 20757584 (Version 2)
Quarter: 2022Q2

REPORT INFORMATION
  Report Type: Report from Study
  Country: US (occurrence: US)
  Receive Date: 20220427
  Receipt Date: 20220518
  Transmission Date: 20220720
  Serious: Yes (Hospitalization)
  Sender: FDA-Public Use
  Company Number: US-NOVARTISPH-NVSC2022US095446

PATIENT
  Sex: Female

DRUGS (1)
  1. ENTRESTO [Suspect]
     Active Substance: SACUBITRIL\VALSARTAN
     Indication: Product used for unknown indication
     Dosage: 100 MG (49/51 MG), BID
     Route: 048
     Dates: start: 2019

REACTIONS (6)
  - Cardiac disorder [Unknown]
  - Weight decreased [Recovering/Resolving]
  - Back injury [Unknown]
  - Back pain [Unknown]
  - Laboratory test abnormal [Unknown]
  - White blood cell count decreased [Unknown]
